FAERS Safety Report 24951716 (Version 2)
Quarter: 2025Q1

REPORT INFORMATION
  Report Type: Spontaneous
  Country: US (occurrence: US)
  Receive Date: 20250210
  Receipt Date: 20250218
  Transmission Date: 20250408
  Serious: Yes (Life-Threatening, Hospitalization, Other)
  Sender: PFIZER
  Company Number: US-PFIZER INC-PV202500015171

PATIENT
  Age: 66 Year
  Sex: Female
  Weight: 124.3 kg

DRUGS (3)
  1. BOSULIF [Suspect]
     Active Substance: BOSUTINIB MONOHYDRATE
     Indication: Chronic myeloid leukaemia
     Dosage: 100 MG, TAKE 3 TABLETS ONCE DAILY
     Route: 048
  2. BOSULIF [Suspect]
     Active Substance: BOSUTINIB MONOHYDRATE
     Dosage: 100 MG, TAKE 3 TABLETS ONCE DAILY
     Route: 048
     Dates: start: 20210903
  3. ALDACTONE [Concomitant]
     Active Substance: SPIRONOLACTONE
     Dosage: 25 MG, TAKE 0.5 TABLETS 2 TIMES DAILY
     Route: 048

REACTIONS (4)
  - Pleural effusion [Recovering/Resolving]
  - Thrombocytopenia [Recovering/Resolving]
  - Fatigue [Unknown]
  - Dyspnoea exertional [Not Recovered/Not Resolved]
